FAERS Safety Report 13891052 (Version 2)
Quarter: 2017Q3

REPORT INFORMATION
  Report Type: Spontaneous
  Country: US (occurrence: US)
  Receive Date: 20170822
  Receipt Date: 20170912
  Transmission Date: 20171127
  Serious: Yes (Other)
  Sender: FDA-Public Use
  Company Number: US-JNJCP-30000372260

PATIENT
  Sex: Female
  Weight: 57 kg

DRUGS (3)
  1. NEUTROGENA OIL FREE MOISTURE BROAD SPECTRUM SPF15 [Suspect]
     Active Substance: AVOBENZONE\OCTISALATE\OCTOCRYLENE\OXYBENZONE
     Indication: PROPHYLAXIS
     Dosage: TWO PUMPS WORTH APPLIED IT USING HANDS, ONCE PER DAY
     Route: 061
     Dates: end: 20170208
  2. NEUTROGENA FACIAL BAR ACNE-PRONE SKIN FORMULA [Suspect]
     Active Substance: COSMETICS
     Indication: REMOVAL OF INERT MATTER FROM SKIN OR SUBCUTANEOUS TISSUE
     Dosage: TWICE DAILY
     Route: 061
  3. UNSPECIFIED EYE MAKE UP [Concomitant]
     Indication: PRODUCT USED FOR UNKNOWN INDICATION

REACTIONS (10)
  - Product odour abnormal [Unknown]
  - Application site irritation [Recovered/Resolved]
  - Application site acne [Recovered/Resolved]
  - Eye pruritus [Recovered/Resolved]
  - Eye disorder [Recovered/Resolved]
  - Eye irritation [Recovered/Resolved]
  - Precancerous skin lesion [Recovered/Resolved]
  - Application site exfoliation [Recovered/Resolved]
  - Application site pain [Recovered/Resolved]
  - Application site pruritus [Recovered/Resolved]
